FAERS Safety Report 21692753 (Version 1)
Quarter: 2022Q4

REPORT INFORMATION
  Report Type: Spontaneous
  Country: RU (occurrence: None)
  Receive Date: 20221207
  Receipt Date: 20221207
  Transmission Date: 20230113
  Serious: Yes (Other)
  Sender: FDA-Public Use
  Company Number: RU-ROCHE-3232081

PATIENT
  Age: 53 Year
  Sex: Female

DRUGS (14)
  1. CAPECITABINE [Suspect]
     Active Substance: CAPECITABINE
     Indication: Breast cancer
     Route: 048
     Dates: start: 201901, end: 201904
  2. BEVACIZUMAB [Suspect]
     Active Substance: BEVACIZUMAB
     Indication: Breast cancer
     Route: 042
     Dates: start: 201912
  3. BEVACIZUMAB [Suspect]
     Active Substance: BEVACIZUMAB
     Route: 042
     Dates: start: 202108
  4. BEVACIZUMAB [Suspect]
     Active Substance: BEVACIZUMAB
     Route: 042
     Dates: start: 20220628
  5. GEMZAR [Suspect]
     Active Substance: GEMCITABINE HYDROCHLORIDE
     Indication: Breast cancer
     Route: 065
     Dates: start: 201912
  6. CISPLATIN [Suspect]
     Active Substance: CISPLATIN
     Indication: Breast cancer
     Route: 065
     Dates: start: 202108
  7. CARBOPLATIN [Suspect]
     Active Substance: CARBOPLATIN
     Indication: Breast cancer
     Route: 065
     Dates: start: 201708, end: 201711
  8. CARBOPLATIN [Suspect]
     Active Substance: CARBOPLATIN
     Route: 065
     Dates: start: 201912
  9. TAMOXIFEN [Concomitant]
     Active Substance: TAMOXIFEN
     Indication: Breast cancer
  10. ERIBULIN [Concomitant]
     Active Substance: ERIBULIN
     Indication: Breast cancer
     Dates: start: 201906, end: 201911
  11. IRINOTECAN [Concomitant]
     Active Substance: IRINOTECAN
     Indication: Breast cancer
     Dates: start: 20220719
  12. IXABEPILONE [Concomitant]
     Active Substance: IXABEPILONE
     Indication: Breast cancer
  13. DENOSUMAB [Concomitant]
     Active Substance: DENOSUMAB
     Indication: Breast cancer
  14. DOCETAXEL [Concomitant]
     Active Substance: DOCETAXEL
     Indication: Breast cancer
     Dates: start: 201708, end: 201711

REACTIONS (16)
  - Lymphadenopathy [Unknown]
  - Renal neoplasm [Unknown]
  - Metastases to central nervous system [Unknown]
  - Metastases to central nervous system [Unknown]
  - Hemiparesis [Unknown]
  - Epilepsy [Unknown]
  - Polyneuropathy [Unknown]
  - Peripheral sensorimotor neuropathy [Unknown]
  - Bone pain [Unknown]
  - Asthenia [Unknown]
  - Wheelchair user [Unknown]
  - Metastases to liver [Unknown]
  - Metastases to kidney [Unknown]
  - Metastases to lung [Unknown]
  - Metastases to soft tissue [Unknown]
  - Metastases to bone [Unknown]

NARRATIVE: CASE EVENT DATE: 20181101
